FAERS Safety Report 10725295 (Version 1)
Quarter: 2015Q1

REPORT INFORMATION
  Report Type: Spontaneous
  Country: US (occurrence: US)
  Receive Date: 20150120
  Receipt Date: 20150120
  Transmission Date: 20150721
  Serious: Yes (Death)
  Sender: FDA-Public Use
  Company Number: US-ASTRAZENECA-2015SE03883

PATIENT
  Age: 159 Day
  Sex: Male
  Weight: 4.8 kg

DRUGS (2)
  1. SYNAGIS [Suspect]
     Active Substance: PALIVIZUMAB
     Indication: HEART DISEASE CONGENITAL
     Dosage: 100 MG/ML 15 MG/KG MONTHLY
     Route: 030
     Dates: start: 20141222
  2. SYNAGIS [Suspect]
     Active Substance: PALIVIZUMAB
     Indication: HEART DISEASE CONGENITAL
     Dosage: 100 MG/ML 15 MG/KG MONTHLY
     Route: 030
     Dates: start: 20141121

REACTIONS (1)
  - Death [Fatal]

NARRATIVE: CASE EVENT DATE: 20150103
